FAERS Safety Report 23697134 (Version 2)
Quarter: 2024Q2

REPORT INFORMATION
  Report Type: Report from Study
  Country: US (occurrence: US)
  Receive Date: 20240402
  Receipt Date: 20240608
  Transmission Date: 20240717
  Serious: Yes (Other)
  Sender: FDA-Public Use
  Company Number: US-002147023-NVSC2024US057047

PATIENT
  Age: 44 Year
  Sex: Female
  Weight: 47.619 kg

DRUGS (2)
  1. COSENTYX [Suspect]
     Active Substance: SECUKINUMAB
     Indication: Hidradenitis
     Dosage: 300 MG, QMO
     Route: 058
     Dates: start: 20231218, end: 20240301
  2. COSENTYX [Suspect]
     Active Substance: SECUKINUMAB
     Dosage: UNK
     Route: 065
     Dates: start: 20240202

REACTIONS (2)
  - Herpes virus infection [Recovered/Resolved]
  - Rubber sensitivity [Unknown]

NARRATIVE: CASE EVENT DATE: 20240217
